FAERS Safety Report 8539222-7 (Version None)
Quarter: 2012Q3

REPORT INFORMATION
  Report Type: 
  Country: None (occurrence: None)
  Receive Date: 20120726
  Receipt Date: 20120720
  Transmission Date: 20120928
  Serious: Yes (Hospitalization)
  Sender: FDA-Public Use
  Company Number: TR-PFIZER INC-2012177023

PATIENT
  Age: 32 Year
  Sex: Male

DRUGS (4)
  1. MINOSET PLUS [Concomitant]
     Dosage: UNK, 4X/DAY
  2. CLEOCIN HYDROCHLORIDE [Suspect]
     Indication: OEDEMA PERIPHERAL
  3. HEKSORAL GARGARA [Concomitant]
     Dosage: UNK, 3X/DAY
  4. CLEOCIN HYDROCHLORIDE [Suspect]
     Indication: RASH
     Dosage: 600 UNK, 2X/DAY
     Route: 042
     Dates: start: 20120523, end: 20120523

REACTIONS (2)
  - OEDEMA PERIPHERAL [None]
  - RASH [None]
